FAERS Safety Report 6546773-3 (Version None)
Quarter: 2010Q1

REPORT INFORMATION
  Report Type: 
  Country: None (occurrence: None)
  Receive Date: 20100119
  Receipt Date: 20100104
  Transmission Date: 20100710
  Serious: Yes (Hospitalization)
  Sender: FDA-Public Use
  Company Number: 2009AC000522

PATIENT
  Age: 74 Year
  Sex: Female

DRUGS (17)
  1. DIGOXIN [Suspect]
     Dosage: 0.25 MG;QD;PO
     Route: 048
  2. DIGOXIN [Suspect]
     Dosage: 0.125 MG;QD;PO
     Route: 048
  3. LASIX [Concomitant]
  4. JANUMET [Concomitant]
  5. ASPIRIN [Concomitant]
  6. K-DUR [Concomitant]
  7. LISINOPRIL [Concomitant]
  8. GLIPIZIDE [Concomitant]
  9. CARTIA XT [Concomitant]
  10. LORCET-HD [Concomitant]
  11. POTASSIUM CHLORIDE [Concomitant]
  12. OMEPRAZOLE [Concomitant]
  13. ZOCOR [Concomitant]
  14. ALPRAZOLAM [Concomitant]
  15. TRIAMCINOLONE [Concomitant]
  16. ALLEGRA [Concomitant]
  17. CEPHALEXIN [Concomitant]

REACTIONS (5)
  - DEHYDRATION [None]
  - NAUSEA [None]
  - NEUROPATHY PERIPHERAL [None]
  - THERAPEUTIC AGENT TOXICITY [None]
  - VOMITING [None]
